FAERS Safety Report 4360443-1 (Version None)
Quarter: 2004Q2

REPORT INFORMATION
  Report Type: 
  Country: None (occurrence: None)
  Receive Date: 20040514
  Receipt Date: 20040503
  Transmission Date: 20050107
  Serious: Yes (Other)
  Sender: FDA-Public Use
  Company Number: 2004027675

PATIENT
  Sex: Female
  Weight: 47.6277 kg

DRUGS (2)
  1. BENADRYL [Suspect]
     Indication: ARTHROPOD STING
     Dosage: UNKNOWN (UNKNOWN), INTRAVENOUS
     Route: 042
     Dates: start: 19940101, end: 19940101
  2. METHYLPREDNISOLONE ACETATE (METHYLPREDNISOLONE ACETATE) [Suspect]
     Indication: ARTHROPOD STING
     Dosage: UNKNOWN (UNKNOWN), UNKNOWN
     Route: 065
     Dates: start: 19940101, end: 19940101

REACTIONS (3)
  - EPHELIDES [None]
  - INJECTION SITE VESICLES [None]
  - MALIGNANT MELANOMA STAGE II [None]
